FAERS Safety Report 24267916 (Version 1)
Quarter: 2024Q3

REPORT INFORMATION
  Report Type: Spontaneous
  Country: US (occurrence: US)
  Receive Date: 20240830
  Receipt Date: 20240830
  Transmission Date: 20241017
  Serious: Yes (Life-Threatening, Hospitalization, Other)
  Sender: HIKMA
  Company Number: US-MLMSERVICE-20240809-PI157958-00218-1

PATIENT
  Age: 54 Year
  Sex: Female

DRUGS (4)
  1. METHOTREXATE [Suspect]
     Active Substance: METHOTREXATE
     Indication: Mixed connective tissue disease
     Dosage: 15 MG ONCE WEEKLY IN TWO DIVIDED DOSES
     Route: 065
  2. METHOTREXATE [Suspect]
     Active Substance: METHOTREXATE
     Indication: Polyarthritis
     Dosage: ERRONEOUSLY TOOK THREE 2.5 MG TABLETS TWICE A DAY, A TOTAL OF 15 MG DAILY FOR 5 DAYS
     Route: 065
  3. BUDESONIDE [Concomitant]
     Active Substance: BUDESONIDE
     Indication: Colitis ulcerative
     Dosage: UNKNOWN
     Route: 065
  4. MESALAMINE [Concomitant]
     Active Substance: MESALAMINE
     Indication: Colitis ulcerative
     Dosage: UNKNOWN
     Route: 065

REACTIONS (17)
  - Gait disturbance [Recovering/Resolving]
  - Papule [Recovering/Resolving]
  - Jaundice [Recovering/Resolving]
  - Stomatitis haemorrhagic [Recovering/Resolving]
  - Folliculitis [Recovering/Resolving]
  - Condition aggravated [Recovering/Resolving]
  - Dysphagia [Recovering/Resolving]
  - Colitis [Recovering/Resolving]
  - Stomatitis [Recovering/Resolving]
  - Skin lesion [Recovering/Resolving]
  - Nausea [Recovering/Resolving]
  - Pancytopenia [Recovering/Resolving]
  - Toxicity to various agents [Recovering/Resolving]
  - Accidental overdose [Recovering/Resolving]
  - Mucosal inflammation [Recovering/Resolving]
  - Diarrhoea [Recovering/Resolving]
  - Vomiting [Recovering/Resolving]
